FAERS Safety Report 10202195 (Version 1)
Quarter: 2014Q2

REPORT INFORMATION
  Report Type: Spontaneous
  Country: IT (occurrence: IT)
  Receive Date: 20140528
  Receipt Date: 20140528
  Transmission Date: 20141212
  Serious: Yes (Other)
  Sender: FDA-Public Use
  Company Number: IT-TEVA-482535ISR

PATIENT
  Age: 47 Year
  Sex: Female

DRUGS (3)
  1. ZOLPIDEM [Suspect]
     Indication: INTENTIONAL OVERDOSE
     Dosage: 120 MG TOTAL
     Route: 048
     Dates: start: 20140324, end: 20140324
  2. ZOLOFT - 50 MG COMPRESSE RIVESTITE CON FILM - PFIZER ITALIA S.R.L. [Suspect]
     Indication: INTENTIONAL OVERDOSE
     Dosage: 600 MG TOTAL
     Route: 048
     Dates: start: 20140324, end: 20140324
  3. TALOFEN - 4 G/100 ML GOCCE ORALI SOLUZIONE [Concomitant]
     Indication: PERSONALITY DISORDER
     Dosage: 15 GTT
     Dates: start: 20070101, end: 20140324

REACTIONS (4)
  - Confusional state [Recovered/Resolved]
  - Intentional overdose [Recovered/Resolved]
  - Loss of consciousness [Recovered/Resolved]
  - Drug abuse [None]
